FAERS Safety Report 6030106-5 (Version None)
Quarter: 2009Q1

REPORT INFORMATION
  Report Type: 
  Country: None (occurrence: None)
  Receive Date: 20090107
  Receipt Date: 20081226
  Transmission Date: 20090719
  Serious: Yes (Death, Other)
  Sender: FDA-Public Use
  Company Number: JP-BAYER-200910008BYL

PATIENT
  Age: 83 Year
  Sex: Female

DRUGS (4)
  1. NEXAVAR [Suspect]
     Indication: RENAL CELL CARCINOMA STAGE III
     Dosage: UNIT DOSE: 200 MG
     Route: 048
     Dates: start: 20081001, end: 20081028
  2. NEXAVAR [Suspect]
     Dosage: UNIT DOSE: 200 MG
     Route: 048
     Dates: start: 20081029, end: 20081104
  3. ORGARAN [Concomitant]
     Dosage: AS USED: 2500 IU
     Route: 042
     Dates: start: 20081126, end: 20081202
  4. CARBENIN [Concomitant]
     Dosage: AS USED: 1 G
     Route: 041
     Dates: start: 20081116, end: 20081125

REACTIONS (4)
  - DISSEMINATED INTRAVASCULAR COAGULATION [None]
  - GASTROINTESTINAL EROSION [None]
  - LIPASE INCREASED [None]
  - MELAENA [None]
